FAERS Safety Report 9028202 (Version 1)
Quarter: 2013Q1

REPORT INFORMATION
  Report Type: Spontaneous
  Country: US (occurrence: US)
  Receive Date: 20130123
  Receipt Date: 20130123
  Transmission Date: 20140127
  Serious: Yes (Other)
  Sender: FDA-Public Use
  Company Number: US-SANOFI-AVENTIS-2013SA002849

PATIENT
  Age: 94 Year
  Sex: Female

DRUGS (5)
  1. LANTUS [Suspect]
     Indication: TYPE 2 DIABETES MELLITUS
     Dosage: DOSE:20 UNIT(S)
  2. LANTUS [Suspect]
     Indication: TYPE 2 DIABETES MELLITUS
     Dosage: DOSE:40 UNIT(S)
  3. PLAVIX [Concomitant]
  4. COREG [Concomitant]
  5. HUMULIN R [Concomitant]
     Dosage: 3-4 TIMES A DAY

REACTIONS (4)
  - Coronary arterial stent insertion [Unknown]
  - Polymyalgia rheumatica [Unknown]
  - Blood glucose increased [Unknown]
  - Feeling abnormal [Unknown]
